FAERS Safety Report 7969661-4 (Version None)
Quarter: 2011Q4

REPORT INFORMATION
  Report Type: 
  Country: None (occurrence: None)
  Receive Date: 20111122
  Receipt Date: 20110822
  Transmission Date: 20120403
  Serious: No
  Sender: FDA-Public Use
  Company Number: PHEH2011US02361

PATIENT
  Sex: Female

DRUGS (1)
  1. GILENYA [Suspect]

REACTIONS (1)
  - LIMB DISCOMFORT [None]
